FAERS Safety Report 18326903 (Version 2)
Quarter: 2020Q4

REPORT INFORMATION
  Report Type: Spontaneous
  Country: US (occurrence: US)
  Receive Date: 20200929
  Receipt Date: 20201018
  Transmission Date: 20210113
  Serious: Yes (Hospitalization, Disabling, Other)
  Sender: FDA-Public Use
  Company Number: US-009507513-2009USA009071

PATIENT
  Age: 68 Year
  Sex: Female

DRUGS (5)
  1. KEYTRUDA [Suspect]
     Active Substance: PEMBROLIZUMAB
     Indication: BREAST CANCER STAGE IV
     Dosage: 200 MILLIGRAM, EVERY THREE WEEKS
     Route: 042
     Dates: start: 201907, end: 20200617
  2. ANALGESIC (UNSPECIFIED) [Concomitant]
     Active Substance: UNSPECIFIED INGREDIENT
  3. DECADRON [Concomitant]
     Active Substance: DEXAMETHASONE
  4. VITAMINS (UNSPECIFIED) [Concomitant]
     Active Substance: VITAMINS
  5. LYNPARZA [Concomitant]
     Active Substance: OLAPARIB

REACTIONS (12)
  - Cystitis [Unknown]
  - Agitation [Unknown]
  - Gait disturbance [Not Recovered/Not Resolved]
  - Movement disorder [Not Recovered/Not Resolved]
  - Adverse event [Unknown]
  - Rash [Unknown]
  - Abdominal pain upper [Unknown]
  - Thyroid disorder [Unknown]
  - Electrocardiogram abnormal [Unknown]
  - Product use in unapproved indication [Unknown]
  - Paralysis [Not Recovered/Not Resolved]
  - Endocrine disorder [Unknown]

NARRATIVE: CASE EVENT DATE: 201907
